FAERS Safety Report 24110248 (Version 1)
Quarter: 2024Q3

REPORT INFORMATION
  Report Type: Spontaneous
  Country: US (occurrence: US)
  Receive Date: 20240718
  Receipt Date: 20240718
  Transmission Date: 20241016
  Serious: Yes (Life-Threatening, Hospitalization, Other)
  Sender: AMGEN
  Company Number: US-AMGEN-USASP2024138977

PATIENT
  Age: 14 Year
  Sex: Female

DRUGS (5)
  1. PREDNISONE [Suspect]
     Active Substance: PREDNISONE
     Indication: Autoimmune hepatitis
     Dosage: UNK
     Route: 065
  2. PREDNISONE [Suspect]
     Active Substance: PREDNISONE
     Indication: Immunosuppression
  3. RITUXIMAB [Suspect]
     Active Substance: RITUXIMAB
     Indication: Prophylaxis
     Dosage: UNK
     Route: 065
  4. AZATHIOPRINE [Concomitant]
     Active Substance: AZATHIOPRINE
     Indication: Autoimmune hepatitis
     Dosage: UNK
     Route: 048
  5. AZATHIOPRINE [Concomitant]
     Active Substance: AZATHIOPRINE
     Indication: Immunosuppression

REACTIONS (18)
  - Coagulopathy [Recovered/Resolved]
  - Post procedural haemorrhage [Unknown]
  - Hepatic haematoma [Unknown]
  - Liver transplant failure [Unknown]
  - Hepatic cirrhosis [Unknown]
  - Peritonitis bacterial [Unknown]
  - Hepatic encephalopathy [Recovering/Resolving]
  - Renal injury [Unknown]
  - Respiratory failure [Recovered/Resolved]
  - Hepatic artery stenosis [Unknown]
  - Thrombotic microangiopathy [Recovered/Resolved]
  - Hepatic necrosis [Unknown]
  - Pneumonia [Recovered/Resolved]
  - Thrombocytopenia [Unknown]
  - Hypervolaemia [Recovered/Resolved]
  - Procedural haemorrhage [Unknown]
  - Therapeutic product effect variable [Unknown]
  - Off label use [Unknown]
